FAERS Safety Report 6508602-3 (Version None)
Quarter: 2009Q4

REPORT INFORMATION
  Report Type: 
  Country: None (occurrence: None)
  Receive Date: 20091221
  Receipt Date: 20090602
  Transmission Date: 20100525
  Serious: No
  Sender: FDA-Public Use
  Company Number: US-ABBOTT-09P-163-0577605-00

PATIENT

DRUGS (1)
  1. NIMBEX [Suspect]
     Indication: MUSCLE RELAXANT THERAPY

REACTIONS (1)
  - DRUG INEFFECTIVE [None]
